FAERS Safety Report 16115700 (Version 2)
Quarter: 2020Q3

REPORT INFORMATION
  Report Type: Report from Study
  Country: US (occurrence: US)
  Receive Date: 20190326
  Receipt Date: 20200818
  Transmission Date: 20201102
  Serious: No
  Sender: FDA-Public Use
  Company Number: US-ALEXION PHARMACEUTICALS INC.-A201904217

PATIENT
  Sex: Male

DRUGS (2)
  1. STRENSIQ [Suspect]
     Active Substance: ASFOTASE ALFA
     Dosage: UNK
     Route: 065
  2. STRENSIQ [Suspect]
     Active Substance: ASFOTASE ALFA
     Indication: HYPOPHOSPHATASIA
     Dosage: UNK
     Route: 058

REACTIONS (6)
  - Pyrexia [Unknown]
  - Injection site mass [Unknown]
  - Pharyngitis streptococcal [Unknown]
  - Injection site erythema [Unknown]
  - Influenza [Unknown]
  - Injection site warmth [Unknown]

NARRATIVE: CASE EVENT DATE: 20190318
